FAERS Safety Report 12262205 (Version 13)
Quarter: 2018Q2

REPORT INFORMATION
  Report Type: Report from Study
  Country: BR (occurrence: BR)
  Receive Date: 20160413
  Receipt Date: 20180608
  Transmission Date: 20180711
  Serious: Yes (Hospitalization, Other)
  Sender: FDA-Public Use
  Company Number: BR-GLAXOSMITHKLINE-BR2016GSK048722

PATIENT
  Age: 46 Year
  Sex: Female
  Weight: 51 kg

DRUGS (9)
  1. DULOXETINE HYDROCHLORIDE. [Concomitant]
     Active Substance: DULOXETINE HYDROCHLORIDE
     Indication: PRODUCT USED FOR UNKNOWN INDICATION
     Dosage: UNK
  2. GABAPENTIN. [Concomitant]
     Active Substance: GABAPENTIN
     Indication: PRODUCT USED FOR UNKNOWN INDICATION
     Dosage: UNK
  3. BELIMUMAB [Suspect]
     Active Substance: BELIMUMAB
     Dosage: UNK
     Dates: end: 20170401
  4. RIVOTRIL [Concomitant]
     Active Substance: CLONAZEPAM
     Indication: PRODUCT USED FOR UNKNOWN INDICATION
     Dosage: UNK
  5. BELIMUMAB [Suspect]
     Active Substance: BELIMUMAB
     Indication: SYSTEMIC LUPUS ERYTHEMATOSUS
     Dosage: UNK
     Dates: start: 20160401
  6. HYDROXYCHLOROQUINE SULFATE. [Concomitant]
     Active Substance: HYDROXYCHLOROQUINE SULFATE
     Indication: PRODUCT USED FOR UNKNOWN INDICATION
     Dosage: UNK
  7. VITAMIN D [Concomitant]
     Active Substance: CHOLECALCIFEROL
     Indication: PRODUCT USED FOR UNKNOWN INDICATION
     Dosage: UNK
  8. PREDNISONE. [Concomitant]
     Active Substance: PREDNISONE
     Indication: PRODUCT USED FOR UNKNOWN INDICATION
     Dosage: UNK
  9. RAMIPRIL. [Concomitant]
     Active Substance: RAMIPRIL
     Indication: PRODUCT USED FOR UNKNOWN INDICATION
     Dosage: UNK

REACTIONS (29)
  - Sjogren^s syndrome [Unknown]
  - Malaise [Not Recovered/Not Resolved]
  - Nephrolithiasis [Unknown]
  - Headache [Unknown]
  - Pain in extremity [Unknown]
  - Dry eye [Unknown]
  - Circumstance or information capable of leading to medication error [Unknown]
  - Syncope [Unknown]
  - Pain [Unknown]
  - Feeling abnormal [Unknown]
  - Dental operation [Unknown]
  - Hyperhidrosis [Not Recovered/Not Resolved]
  - Diarrhoea [Recovering/Resolving]
  - Swelling [Unknown]
  - Limb discomfort [Unknown]
  - Dizziness [Unknown]
  - Product availability issue [Unknown]
  - Feeling of body temperature change [Not Recovered/Not Resolved]
  - Bursitis [Unknown]
  - Arthralgia [Unknown]
  - Nervous system disorder [Unknown]
  - Cyst [Unknown]
  - Rib fracture [Unknown]
  - Vomiting [Unknown]
  - Abdominal distension [Unknown]
  - Drug dose omission [Unknown]
  - Asthenia [Not Recovered/Not Resolved]
  - Tendonitis [Unknown]
  - Migraine [Unknown]

NARRATIVE: CASE EVENT DATE: 201610
